FAERS Safety Report 7464132-6 (Version None)
Quarter: 2011Q2

REPORT INFORMATION
  Report Type: 
  Country: None (occurrence: None)
  Receive Date: 20110506
  Receipt Date: 20110422
  Transmission Date: 20111010
  Serious: Yes (Hospitalization)
  Sender: FDA-Public Use
  Company Number: US-JNJFOC-20110203586

PATIENT
  Sex: Female
  Weight: 63.5 kg

DRUGS (12)
  1. REMICADE [Suspect]
     Dosage: 3 INFUSIONS
     Route: 042
  2. ADALIMUMAB [Concomitant]
  3. ACETAMINOPHEN [Concomitant]
     Indication: PREMEDICATION
     Route: 065
  4. REMICADE [Suspect]
     Dosage: TOTAL 21 INFUSIONS
     Route: 042
  5. REMICADE [Suspect]
     Route: 042
  6. METHOTREXATE [Concomitant]
     Indication: CROHN'S DISEASE
     Route: 065
  7. STEROIDS NOS [Concomitant]
     Indication: PREMEDICATION
     Route: 065
  8. ANTIHISTAMINES [Concomitant]
     Indication: PREMEDICATION
     Route: 065
  9. REMICADE [Suspect]
     Route: 042
  10. REMICADE [Suspect]
     Indication: CROHN'S DISEASE
     Dosage: 6 INFUSIONS PRIOR TO BASELINE
     Route: 042
  11. REMICADE [Suspect]
     Dosage: 8 INFUSOINS
     Route: 042
  12. MERCAPTOPURINE [Concomitant]
     Indication: CROHN'S DISEASE
     Route: 065

REACTIONS (2)
  - CLOSTRIDIAL INFECTION [None]
  - CROHN'S DISEASE [None]
